FAERS Safety Report 18679968 (Version 1)
Quarter: 2020Q4

REPORT INFORMATION
  Report Type: Spontaneous
  Country: PL (occurrence: PL)
  Receive Date: 20201230
  Receipt Date: 20201230
  Transmission Date: 20210114
  Serious: Yes (Other)
  Sender: FDA-Public Use
  Company Number: PL-AUROBINDO-AUR-APL-2020-063214

PATIENT
  Age: 58 Year
  Sex: Female

DRUGS (5)
  1. RIBOCICLIB. [Suspect]
     Active Substance: RIBOCICLIB
     Indication: PRODUCT USED FOR UNKNOWN INDICATION
     Dosage: 600 MILLIGRAM (RESUMED)
     Route: 065
  2. RIBOCICLIB. [Suspect]
     Active Substance: RIBOCICLIB
     Dosage: 400 MILLIGRAM
     Route: 065
  3. RIBOCICLIB. [Suspect]
     Active Substance: RIBOCICLIB
     Dosage: 600 MILLIGRAM, ONCE A DAY (3 TABLETS OF 200 MG)/ FOR 21 DAYS WITH A SUBSEQUENT 7-DAY BREAK)
     Route: 065
     Dates: start: 201911
  4. ZOLEDRONIC ACID [Suspect]
     Active Substance: ZOLEDRONIC ACID
     Indication: PRODUCT USED FOR UNKNOWN INDICATION
     Dosage: 4 MILLIGRAM, 4 WEEK
     Route: 042
  5. LETROZOLE. [Suspect]
     Active Substance: LETROZOLE
     Indication: PRODUCT USED FOR UNKNOWN INDICATION
     Dosage: 2.5 MILLIGRAM, ONCE A DAY (1 TABLET)
     Route: 065

REACTIONS (5)
  - Alanine aminotransferase increased [Recovered/Resolved]
  - Bone lesion [Unknown]
  - Hepatotoxicity [Unknown]
  - Aspartate aminotransferase increased [Recovered/Resolved]
  - Neutropenia [Not Recovered/Not Resolved]
